FAERS Safety Report 5682194-3 (Version None)
Quarter: 2008Q1

REPORT INFORMATION
  Report Type: 
  Country: None (occurrence: None)
  Receive Date: 20080327
  Receipt Date: 20080317
  Transmission Date: 20080703
  Serious: Yes (Death)
  Sender: FDA-Public Use
  Company Number: DE-JNJFOC-20080303919

PATIENT
  Age: 64 Year
  Sex: Male

DRUGS (1)
  1. IONSYS                          . [Suspect]
     Indication: PROCEDURAL PAIN
     Route: 044

REACTIONS (1)
  - MYOCARDIAL INFARCTION [None]
